FAERS Safety Report 16730735 (Version 2)
Quarter: 2019Q3

REPORT INFORMATION
  Report Type: Spontaneous
  Country: US (occurrence: US)
  Receive Date: 20190822
  Receipt Date: 20190903
  Transmission Date: 20191005
  Serious: Yes (Other)
  Sender: FDA-Public Use
  Company Number: US-PFIZER INC-R1J490

PATIENT
  Age: 83 Year
  Sex: Male

DRUGS (8)
  1. GLUCOTROL [Suspect]
     Active Substance: GLIPIZIDE
     Indication: TYPE 2 DIABETES MELLITUS
     Dosage: 20 MG, UNK  (BEFORE BREAKFAST)
  2. INSULIN HUMAN [Concomitant]
     Active Substance: INSULIN HUMAN
     Indication: TYPE 2 DIABETES MELLITUS
     Dosage: UNK, 4X/DAY (Q6H)
  3. GLUCOTROL [Interacting]
     Active Substance: GLIPIZIDE
     Dosage: 10 MG, UNK (BEFORE DINNER)
  4. TRENTAL [Concomitant]
     Active Substance: PENTOXIFYLLINE
     Indication: PERIPHERAL VASCULAR DISORDER
     Dosage: 400 MG, 3X/DAY
  5. GLUCOTROL [Interacting]
     Active Substance: GLIPIZIDE
     Dosage: 10 MG, 2X/DAY (BEFORE BREAKFAST AND DINNER)
     Route: 048
     Dates: start: 19890109, end: 19890226
  6. COUMADIN [Concomitant]
     Active Substance: WARFARIN SODIUM
     Dosage: UNK
  7. SULFAMETHOXAZOLE/TRIMETHOPRIM [Interacting]
     Active Substance: SULFAMETHOXAZOLE\TRIMETHOPRIM
     Dosage: UNK, 2X/DAY (DOUBLE STRENGTH (160/800 MG) BID FOR TEN DAYS)
     Dates: start: 19890222
  8. SULFAMETHOXAZOLE/TRIMETHOPRIM [Interacting]
     Active Substance: SULFAMETHOXAZOLE\TRIMETHOPRIM
     Indication: URINARY TRACT INFECTION
     Dosage: UNK
     Dates: start: 19890222, end: 19890304

REACTIONS (7)
  - Hypoglycaemia [Recovered/Resolved]
  - Fall [Unknown]
  - Drug interaction [Unknown]
  - Speech disorder [Unknown]
  - Mental status changes [Unknown]
  - Abnormal behaviour [Unknown]
  - Agitation [Unknown]

NARRATIVE: CASE EVENT DATE: 198902
